FAERS Safety Report 23407084 (Version 1)
Quarter: 2024Q1

REPORT INFORMATION
  Report Type: Spontaneous
  Country: DE (occurrence: DE)
  Receive Date: 20240116
  Receipt Date: 20240116
  Transmission Date: 20240410
  Serious: Yes (Life-Threatening, Hospitalization)
  Sender: FDA-Public Use
  Company Number: DE-009507513-2401DEU005705

PATIENT
  Age: 36 Year
  Sex: Female

DRUGS (1)
  1. KEYTRUDA [Suspect]
     Active Substance: PEMBROLIZUMAB
     Indication: Triple negative breast cancer
     Dosage: 200 MILLIGRAM, Q3W
     Dates: start: 202307, end: 202309

REACTIONS (2)
  - Cell death [Recovered/Resolved]
  - Skin disorder [Recovering/Resolving]

NARRATIVE: CASE EVENT DATE: 20230101
